FAERS Safety Report 5116274-8 (Version None)
Quarter: 2006Q3

REPORT INFORMATION
  Report Type: 
  Country: None (occurrence: None)
  Receive Date: 20060925
  Receipt Date: 20060918
  Transmission Date: 20061208
  Serious: Yes (Other)
  Sender: FDA-Public Use
  Company Number: 163-21880-06090326

PATIENT
  Age: 43 Year
  Sex: Female

DRUGS (7)
  1. REVLIMID [Suspect]
     Indication: MULTIPLE MYELOMA
     Dosage: 25 MG, 1 IN 1 D, ORAL
     Route: 048
     Dates: start: 20060825, end: 20060101
  2. COUMADIN [Concomitant]
  3. AREDIA [Concomitant]
  4. CELEXA [Concomitant]
  5. AMBIEN [Concomitant]
  6. ATIVAN [Concomitant]
  7. DECADRON [Concomitant]

REACTIONS (2)
  - BLOOD HUMAN CHORIONIC GONADOTROPIN INCREASED [None]
  - FATIGUE [None]
